FAERS Safety Report 21085267 (Version 1)
Quarter: 2022Q3

REPORT INFORMATION
  Report Type: Spontaneous
  Country: US (occurrence: US)
  Receive Date: 20220714
  Receipt Date: 20220714
  Transmission Date: 20221027
  Serious: Yes (Other)
  Sender: FDA-Public Use
  Company Number: US-PRINSTON PHARMACEUTICAL INC.-2022PRN00241

PATIENT
  Sex: Male

DRUGS (1)
  1. CAPTOPRIL [Suspect]
     Active Substance: CAPTOPRIL

REACTIONS (4)
  - Cerebral haemorrhage [Unknown]
  - Impulse-control disorder [Unknown]
  - Memory impairment [Unknown]
  - Drug ineffective [Unknown]
